FAERS Safety Report 25457711 (Version 1)
Quarter: 2025Q2

REPORT INFORMATION
  Report Type: Spontaneous
  Country: US (occurrence: US)
  Receive Date: 20250619
  Receipt Date: 20250619
  Transmission Date: 20250717
  Serious: No
  Sender: JOHNSON AND JOHNSON
  Company Number: US-VIIV HEALTHCARE-US2025AMR074618

PATIENT
  Sex: Female

DRUGS (2)
  1. RILPIVIRINE [Suspect]
     Active Substance: RILPIVIRINE
     Indication: Product used for unknown indication
     Route: 065
  2. CABOTEGRAVIR [Suspect]
     Active Substance: CABOTEGRAVIR
     Indication: Product used for unknown indication
     Route: 065

REACTIONS (5)
  - Injection site pain [Recovered/Resolved]
  - Injection site discharge [Recovering/Resolving]
  - Injection site mass [Recovering/Resolving]
  - Injection site cyst [Recovering/Resolving]
  - Furuncle [Recovering/Resolving]
